FAERS Safety Report 9286111 (Version 1)
Quarter: 2013Q2

REPORT INFORMATION
  Report Type: Report from Study
  Country: CA (occurrence: CA)
  Receive Date: 20130513
  Receipt Date: 20130513
  Transmission Date: 20140414
  Serious: Yes (Other)
  Sender: FDA-Public Use
  Company Number: PHHY2013CA022106

PATIENT
  Age: 31 Year
  Sex: Male

DRUGS (6)
  1. CLOZARIL [Suspect]
     Indication: SCHIZOPHRENIA
     Dosage: 150 MG, QHS
     Dates: start: 20121109
  2. CLOZARIL [Suspect]
     Dosage: 250 MG, QHS
     Dates: end: 20121223
  3. ATIVAN [Concomitant]
     Dosage: UNK UKN, UNK
  4. HALDOL [Concomitant]
     Dosage: UNK UKN, UNK
  5. WELLBUTRIN XL [Concomitant]
     Dosage: 150 MG, UNK
     Dates: start: 20121127, end: 20121218
  6. WELLBUTRIN XL [Concomitant]
     Dosage: 300 MG, UNK

REACTIONS (10)
  - Hepatosplenomegaly [Recovered/Resolved]
  - Influenza like illness [Recovered/Resolved]
  - Drug-induced liver injury [Recovered/Resolved]
  - Gamma-glutamyltransferase increased [Recovered/Resolved]
  - Blood alkaline phosphatase increased [Recovered/Resolved]
  - Aspartate aminotransferase increased [Recovered/Resolved]
  - Alanine aminotransferase increased [Recovered/Resolved]
  - Eosinophilia [Recovered/Resolved]
  - Fatigue [Recovered/Resolved]
  - Nausea [Recovered/Resolved]
